FAERS Safety Report 16095531 (Version 1)
Quarter: 2019Q1

REPORT INFORMATION
  Report Type: Spontaneous
  Country: US (occurrence: US)
  Receive Date: 20190320
  Receipt Date: 20190320
  Transmission Date: 20190418
  Serious: No
  Sender: FDA-Public Use
  Company Number: US-PFIZER INC-2019118138

PATIENT
  Age: 73 Year
  Sex: Male

DRUGS (1)
  1. EUCRISA [Suspect]
     Active Substance: CRISABOROLE
     Dosage: UNK, 1X/DAY APPLY TO THE AFFECTED AREAS NIGHTLY
     Dates: start: 201810

REACTIONS (1)
  - Pain [Recovered/Resolved]
